FAERS Safety Report 7219195-X (Version None)
Quarter: 2011Q1

REPORT INFORMATION
  Report Type: 
  Country: None (occurrence: None)
  Receive Date: 20110103
  Receipt Date: 20101224
  Transmission Date: 20110831
  Serious: Yes (Other)
  Sender: FDA-Public Use
  Company Number: CRC-10-191

PATIENT
  Age: 92 Year
  Sex: Female

DRUGS (1)
  1. METFORMIN HYDROCHLORIDE [Suspect]
     Indication: DIABETES MELLITUS
     Dosage: ONE TABLET IN AM; ORAL, FOR A LONG TIME
     Route: 048

REACTIONS (4)
  - FOREIGN BODY [None]
  - PRODUCT SHAPE ISSUE [None]
  - PRODUCT SIZE ISSUE [None]
  - DYSPHAGIA [None]
